FAERS Safety Report 17712111 (Version 1)
Quarter: 2020Q2

REPORT INFORMATION
  Report Type: Spontaneous
  Country: US (occurrence: US)
  Receive Date: 20200424
  Receipt Date: 20200424
  Transmission Date: 20200714
  Serious: Yes (Death)
  Sender: FDA-Public Use
  Company Number: None

PATIENT
  Age: 54 Year
  Sex: Male

DRUGS (9)
  1. RITUXAN [Suspect]
     Active Substance: RITUXIMAB
     Indication: PROSTATE CANCER
     Dosage: ?          OTHER FREQUENCY:DAYS 1,8,15,22;?
     Route: 042
     Dates: start: 20200205
  2. CALCIUM [Concomitant]
     Active Substance: CALCIUM
  3. XGEVA [Concomitant]
     Active Substance: DENOSUMAB
  4. XTANDI [Concomitant]
     Active Substance: ENZALUTAMIDE
  5. COUMADIN [Concomitant]
     Active Substance: WARFARIN SODIUM
  6. MEPERIDINE [Concomitant]
     Active Substance: MEPERIDINE
  7. LUPRON [Concomitant]
     Active Substance: LEUPROLIDE ACETATE
  8. PREDNISONE. [Concomitant]
     Active Substance: PREDNISONE
  9. VITAMIN D [Concomitant]
     Active Substance: VITAMIN D NOS

REACTIONS (1)
  - Death [None]
